FAERS Safety Report 10505689 (Version 2)
Quarter: 2014Q4

REPORT INFORMATION
  Report Type: Spontaneous
  Country: IE (occurrence: IE)
  Receive Date: 20141008
  Receipt Date: 20141118
  Transmission Date: 20150528
  Serious: Yes (Hospitalization)
  Sender: FDA-Public Use
  Company Number: PHFR2014IE006670

PATIENT
  Sex: Male
  Weight: 110 kg

DRUGS (1)
  1. CLOZAPINE. [Suspect]
     Active Substance: CLOZAPINE
     Indication: SCHIZOAFFECTIVE DISORDER
     Dosage: 300 MG, DAILY
     Route: 048

REACTIONS (3)
  - Hypertriglyceridaemia [Not Recovered/Not Resolved]
  - Drooling [Recovering/Resolving]
  - Schizoaffective disorder [Recovered/Resolved]
